FAERS Safety Report 9015339 (Version 3)
Quarter: 2013Q2

REPORT INFORMATION
  Report Type: Spontaneous
  Country: US (occurrence: US)
  Receive Date: 20130116
  Receipt Date: 20130610
  Transmission Date: 20140414
  Serious: Yes (Hospitalization, Disabling)
  Sender: FDA-Public Use
  Company Number: US-BAYER-2013-004242

PATIENT
  Age: 39 Year
  Sex: Female
  Weight: 56.69 kg

DRUGS (5)
  1. YASMIN [Suspect]
     Dosage: UNK
     Dates: start: 200501, end: 200702
  2. ALBUTEROL INHALER [Concomitant]
     Dosage: 90 MCG
  3. PREDNISONE [Concomitant]
     Dosage: 20 MG, UNK
  4. ADVAIR [Concomitant]
  5. SINGULAIR [Concomitant]
     Dosage: UNK

REACTIONS (8)
  - Intracranial venous sinus thrombosis [None]
  - Haemorrhagic cerebral infarction [Recovering/Resolving]
  - Cerebrovascular accident [None]
  - Injury [None]
  - Pain [None]
  - Deformity [None]
  - Anxiety [None]
  - Anhedonia [None]
